FAERS Safety Report 8370036-7 (Version None)
Quarter: 2012Q2

REPORT INFORMATION
  Report Type: 
  Country: None (occurrence: None)
  Receive Date: 20120518
  Receipt Date: 20120511
  Transmission Date: 20120825
  Serious: Yes (Other)
  Sender: FDA-Public Use
  Company Number: PHHY2012BR041135

PATIENT
  Sex: Female
  Weight: 63 kg

DRUGS (7)
  1. ATENOLOL [Concomitant]
     Indication: HYPERTENSION
     Dosage: 50 MG, QD
     Route: 048
  2. TYLEX (PARACETAMOL/CODEINE PHOSPHATE) [Concomitant]
     Indication: PAIN
     Dosage: 30 MG, BID
     Route: 048
  3. HYGROTON [Suspect]
     Indication: HYPERTENSION
     Dosage: 25 MG, QD
     Route: 048
  4. PRILOSEC [Concomitant]
     Indication: HIATUS HERNIA
  5. DIOVAN [Suspect]
     Indication: HYPERTENSION
     Dosage: 320 MG, QD
     Route: 048
  6. PRILOSEC [Concomitant]
     Indication: OESOPHAGITIS
     Dosage: 20 MG, BID
     Route: 048
  7. PRILOSEC [Concomitant]
     Indication: GASTRITIS

REACTIONS (15)
  - INFLUENZA [None]
  - MUSCULOSKELETAL PAIN [None]
  - DEPRESSED MOOD [None]
  - FALL [None]
  - URINARY INCONTINENCE [None]
  - VENOUS INJURY [None]
  - PNEUMONIA [None]
  - BLOOD PRESSURE FLUCTUATION [None]
  - SKIN DISCOLOURATION [None]
  - HYPERTENSION [None]
  - NECK PAIN [None]
  - ROAD TRAFFIC ACCIDENT [None]
  - BACK PAIN [None]
  - RESPIRATORY DISTRESS [None]
  - HYPOTENSION [None]
